FAERS Safety Report 8082736-7 (Version None)
Quarter: 2012Q1

REPORT INFORMATION
  Report Type: 
  Country: None (occurrence: None)
  Receive Date: 20120127
  Receipt Date: 20110301
  Transmission Date: 20120608
  Serious: No
  Sender: FDA-Public Use
  Company Number: US-ABBOTT-11P-163-0708338-00

PATIENT
  Age: 60 Year
  Sex: Female

DRUGS (3)
  1. COUMADIN [Concomitant]
     Indication: ANTICOAGULANT THERAPY
  2. COREG [Concomitant]
     Indication: HYPERTENSION
  3. HUMIRA [Suspect]
     Indication: CROHN'S DISEASE
     Dosage: INITIAL DOSE
     Dates: start: 20110228

REACTIONS (1)
  - NAUSEA [None]
